FAERS Safety Report 9362968 (Version 1)
Quarter: 2013Q2

REPORT INFORMATION
  Report Type: Spontaneous
  Country: US (occurrence: None)
  Receive Date: 20130619
  Receipt Date: 20130619
  Transmission Date: 20140414
  Serious: Yes (Death, Hospitalization)
  Sender: FDA-Public Use
  Company Number: KAD201306-000717

PATIENT
  Age: 68 Year
  Sex: Female

DRUGS (2)
  1. AMPHOTERICIN B [Suspect]
     Indication: ZYGOMYCOSIS
  2. POSACONAZOLE [Suspect]
     Indication: ZYGOMYCOSIS

REACTIONS (4)
  - Haemoptysis [None]
  - Pulseless electrical activity [None]
  - Cardiac arrest [None]
  - Off label use [None]
